FAERS Safety Report 4908951-6 (Version None)
Quarter: 2006Q1

REPORT INFORMATION
  Report Type: 
  Country: None (occurrence: None)
  Receive Date: 20060209
  Receipt Date: 20060131
  Transmission Date: 20060701
  Serious: Yes (Other)
  Sender: FDA-Public Use
  Company Number: 2006015580

PATIENT
  Age: 11 Month
  Sex: Female
  Weight: 9.5255 kg

DRUGS (2)
  1. INFANTS' PEDIACARE LONG-ACTING COUGH (DEXTROMETHORPHAN) [Suspect]
     Indication: NASOPHARYNGITIS
     Dosage: 8 ML THREE TIMES (FOUR HOURS APART), ORAL
     Route: 048
     Dates: start: 20060128, end: 20060131
  2. CHILDREN'S PEDIACARE LONG ACTING COUGH PLUS COLD (PSEUDOEPHEDRINE, DEX [Suspect]
     Indication: NASOPHARYNGITIS
     Dosage: 8ML, ORAL
     Route: 048
     Dates: start: 20060129

REACTIONS (2)
  - INSOMNIA [None]
  - WRONG DRUG ADMINISTERED [None]
